FAERS Safety Report 5662587-0 (Version None)
Quarter: 2008Q1

REPORT INFORMATION
  Report Type: 
  Country: None (occurrence: None)
  Receive Date: 20080310
  Receipt Date: 20080310
  Transmission Date: 20080703
  Serious: Yes (Life-Threatening)
  Sender: FDA-Public Use
  Company Number: None

PATIENT
  Sex: Male
  Weight: 63.9572 kg

DRUGS (3)
  1. AVASTIN [Suspect]
     Indication: RECTAL CANCER
     Dosage: 337MG X1 IV
     Route: 042
     Dates: start: 20070924
  2. AVASTIN [Suspect]
     Indication: RECTAL CANCER
     Dosage: 337MG X1 IV
     Route: 042
     Dates: start: 20071106
  3. AVASTIN [Suspect]
     Indication: RECTAL CANCER
     Dosage: 337MG X1 IV
     Route: 042
     Dates: start: 20071120

REACTIONS (9)
  - ADVERSE DRUG REACTION [None]
  - ALCOHOL WITHDRAWAL SYNDROME [None]
  - ANASTOMOTIC COMPLICATION [None]
  - DELIRIUM [None]
  - INCISION SITE COMPLICATION [None]
  - PELVIC ABSCESS [None]
  - POST PROCEDURAL COMPLICATION [None]
  - POSTOPERATIVE ILEUS [None]
  - PURULENT DISCHARGE [None]
